FAERS Safety Report 19668722 (Version 1)
Quarter: 2021Q3

REPORT INFORMATION
  Report Type: Spontaneous
  Country: GB (occurrence: GB)
  Receive Date: 20210806
  Receipt Date: 20210806
  Transmission Date: 20211014
  Serious: Yes (Other)
  Sender: FDA-Public Use
  Company Number: GB-PFIZER INC-202100962212

PATIENT
  Age: 28 Year
  Sex: Female
  Weight: 61.68 kg

DRUGS (3)
  1. CETIRIZINE [Concomitant]
     Active Substance: CETIRIZINE HYDROCHLORIDE
     Dosage: 1 DF, DAILY
     Dates: start: 20210723
  2. SODIUM CROMOGLICATE [Concomitant]
     Active Substance: CROMOLYN SODIUM
     Dosage: 1 DROP, 4X/DAY
     Route: 050
     Dates: start: 20210723
  3. DEPO?PROVERA [Suspect]
     Active Substance: MEDROXYPROGESTERONE ACETATE
     Dosage: 1 DF
     Route: 030
     Dates: start: 20210722, end: 20210722

REACTIONS (1)
  - Throat tightness [Recovered/Resolved]

NARRATIVE: CASE EVENT DATE: 20210722
